FAERS Safety Report 21780516 (Version 1)
Quarter: 2022Q4

REPORT INFORMATION
  Report Type: Spontaneous
  Country: US (occurrence: US)
  Receive Date: 20221227
  Receipt Date: 20221227
  Transmission Date: 20230113
  Serious: Yes (Other)
  Sender: FDA-Public Use
  Company Number: US-009507513-2212USA008544

PATIENT
  Sex: Female

DRUGS (5)
  1. JANUMET [Suspect]
     Active Substance: METFORMIN HYDROCHLORIDE\SITAGLIPTIN PHOSPHATE
     Indication: Diabetes mellitus
     Dosage: 1 TABLET (50/500 (UNIT NOT REPORTED)) TWICE A DAY
     Route: 048
     Dates: start: 2017, end: 20221216
  2. NIFEDIPINE [Concomitant]
     Active Substance: NIFEDIPINE
  3. ATORVASTATIN [Concomitant]
     Active Substance: ATORVASTATIN
  4. LATANOPROST [Concomitant]
     Active Substance: LATANOPROST
  5. BRIMONIDINE [Concomitant]
     Active Substance: BRIMONIDINE TARTRATE

REACTIONS (5)
  - Loss of consciousness [Recovering/Resolving]
  - Glycosylated haemoglobin decreased [Recovering/Resolving]
  - Dysphonia [Recovering/Resolving]
  - Influenza [Recovering/Resolving]
  - Blood glucose decreased [Recovering/Resolving]
